FAERS Safety Report 9958660 (Version 1)
Quarter: 2014Q1

REPORT INFORMATION
  Report Type: Spontaneous
  Country: US (occurrence: None)
  Receive Date: 20140228
  Receipt Date: 20140228
  Transmission Date: 20141002
  Serious: No
  Sender: FDA-Public Use
  Company Number: None

PATIENT
  Sex: Female
  Weight: 77.11 kg

DRUGS (1)
  1. OXYBUTYNIN ER [Suspect]
     Indication: BLADDER DISORDER
     Dosage: 1 TABLET A DAY, BY MOUTH
     Route: 048
     Dates: start: 20130524

REACTIONS (12)
  - Mood swings [None]
  - Dysphagia [None]
  - Dry eye [None]
  - Vision blurred [None]
  - Sleep disorder [None]
  - Constipation [None]
  - Alopecia [None]
  - Pruritus [None]
  - Nervousness [None]
  - Poor quality sleep [None]
  - Dry skin [None]
  - Depression [None]
